FAERS Safety Report 11671890 (Version 1)
Quarter: 2015Q4

REPORT INFORMATION
  Report Type: Spontaneous
  Country: US (occurrence: US)
  Receive Date: 20151027
  Receipt Date: 20151027
  Transmission Date: 20160304
  Serious: No
  Sender: FDA-Public Use
  Company Number: US-ELI_LILLY_AND_COMPANY-US201005003106

PATIENT
  Age: 70 Year
  Sex: Female

DRUGS (3)
  1. FORTEO [Suspect]
     Active Substance: TERIPARATIDE
     Dosage: 20 UG, QOD
  2. FORTEO [Suspect]
     Active Substance: TERIPARATIDE
     Indication: OSTEOPOROSIS
     Dosage: 20 UG, DAILY (1/D)
     Dates: start: 20100414, end: 20100509
  3. FORTEO [Suspect]
     Active Substance: TERIPARATIDE
     Dosage: 20 UG, DAILY (1/D)
     Dates: start: 20100510, end: 20100518

REACTIONS (15)
  - Sleep disorder due to general medical condition, insomnia type [Not Recovered/Not Resolved]
  - Crying [Unknown]
  - Arthralgia [Recovering/Resolving]
  - Arthritis [Unknown]
  - Drug prescribing error [Unknown]
  - Headache [Unknown]
  - Stress [Unknown]
  - Bone pain [Unknown]
  - Pain in extremity [Recovering/Resolving]
  - Night sweats [Recovering/Resolving]
  - Musculoskeletal stiffness [Unknown]
  - Malaise [Recovered/Resolved]
  - Nervousness [Unknown]
  - Irritability [Unknown]
  - Hypertension [Unknown]

NARRATIVE: CASE EVENT DATE: 2010
